FAERS Safety Report 5732886-2 (Version None)
Quarter: 2008Q2

REPORT INFORMATION
  Report Type: 
  Country: None (occurrence: None)
  Receive Date: 20080509
  Receipt Date: 20080229
  Transmission Date: 20081010
  Serious: No
  Sender: FDA-Public Use
  Company Number: A0708110A

PATIENT
  Age: 63 Year
  Sex: Male
  Weight: 92.7 kg

DRUGS (14)
  1. COREG CR [Suspect]
     Indication: LEFT VENTRICULAR DYSFUNCTION
     Dosage: 40MG PER DAY
     Route: 048
     Dates: start: 20070901, end: 20080205
  2. COREG [Suspect]
     Indication: LEFT VENTRICULAR DYSFUNCTION
     Dosage: 12.5MG TWICE PER DAY
     Route: 048
  3. IMDUR [Concomitant]
     Dosage: 60MG TWICE PER DAY
     Route: 048
  4. ENALAPRIL MALEATE [Concomitant]
     Dosage: 5MGD PER DAY
  5. SIMVASTATIN [Concomitant]
     Dosage: 40MGD PER DAY
  6. PRILOSEC [Concomitant]
     Dosage: 20MGD PER DAY
  7. ALLOPURINOL [Concomitant]
     Dosage: 300MGD PER DAY
  8. FUROSEMIDE [Concomitant]
     Dosage: 40MGD PER DAY
  9. POTASSIUM CHLORIDE [Concomitant]
     Dosage: 10MEQ PER DAY
  10. PLAVIX [Concomitant]
     Dosage: 75MGD PER DAY
  11. DIGOXIN [Concomitant]
     Dosage: 125MCG PER DAY
  12. XANAX [Concomitant]
  13. ASPIRIN [Concomitant]
     Dosage: 81MGD PER DAY
  14. CPAP MACHINE [Concomitant]

REACTIONS (1)
  - MEDICATION RESIDUE [None]
